FAERS Safety Report 4828297-4 (Version None)
Quarter: 2005Q4

REPORT INFORMATION
  Report Type: 
  Country: None (occurrence: None)
  Receive Date: 20051115
  Receipt Date: 20051018
  Transmission Date: 20060501
  Serious: Yes (Disabling, Other)
  Sender: FDA-Public Use
  Company Number: 2005AC01639

PATIENT
  Age: 78 Year
  Sex: Female

DRUGS (4)
  1. MARCAINE [Suspect]
     Indication: KNEE ARTHROPLASTY
     Dosage: 20MG/4ML
     Route: 037
  2. MARCAINE [Suspect]
     Indication: ANAESTHESIA
     Dosage: 20MG/4ML
     Route: 037
  3. LEVOBUPIVACAINE [Concomitant]
     Indication: ANAESTHESIA
  4. MORPHINE [Concomitant]
     Indication: ANALGESIC EFFECT

REACTIONS (6)
  - DRUG TOXICITY [None]
  - HYPOTENSION [None]
  - MAINTENANCE OF ANAESTHESIA [None]
  - MYELITIS [None]
  - NEUROMUSCULAR BLOCKADE [None]
  - PARAPLEGIA [None]
